APPROVED DRUG PRODUCT: CEPHALEXIN
Active Ingredient: CEPHALEXIN
Strength: EQ 333MG BASE
Dosage Form/Route: CAPSULE;ORAL
Application: A090836 | Product #003
Applicant: ALKEM LABORATORIES LTD
Approved: Mar 29, 2013 | RLD: No | RS: No | Type: RX